FAERS Safety Report 23363358 (Version 1)
Quarter: 2024Q1

REPORT INFORMATION
  Report Type: Spontaneous
  Country: CN (occurrence: CN)
  Receive Date: 20240103
  Receipt Date: 20240103
  Transmission Date: 20240410
  Serious: Yes (Other)
  Sender: FDA-Public Use
  Company Number: CN-PFIZER INC-PV202300207215

PATIENT
  Age: 55 Year
  Sex: Male
  Weight: 85 kg

DRUGS (2)
  1. CYTARABINE [Suspect]
     Active Substance: CYTARABINE
     Indication: Leukaemia
     Dosage: 0.1 G, 2X/DAY
     Dates: start: 20231103, end: 20231109
  2. IDARUBICIN HYDROCHLORIDE [Concomitant]
     Active Substance: IDARUBICIN HYDROCHLORIDE
     Indication: Leukaemia
     Dosage: 10 MG, 1X/DAY
     Dates: start: 20231103, end: 20231105

REACTIONS (3)
  - Myelosuppression [Recovering/Resolving]
  - Rash erythematous [Recovering/Resolving]
  - Rash pruritic [Recovering/Resolving]

NARRATIVE: CASE EVENT DATE: 20231108
